FAERS Safety Report 6259522-3 (Version None)
Quarter: 2009Q3

REPORT INFORMATION
  Report Type: 
  Country: None (occurrence: None)
  Receive Date: 20090708
  Receipt Date: 20090630
  Transmission Date: 20100115
  Serious: Yes (Hospitalization)
  Sender: FDA-Public Use
  Company Number: JP-BRISTOL-MYERS SQUIBB COMPANY-14597843

PATIENT
  Age: 55 Year
  Sex: Male
  Weight: 67 kg

DRUGS (12)
  1. ERBITUX [Suspect]
     Indication: RECTAL CANCER
     Dosage: 1ST INFUSION ON 3MAR09 700MG, 1 IN 1 WEEK
     Route: 042
     Dates: start: 20090310, end: 20090414
  2. IRINOTECAN HCL [Suspect]
     Indication: RECTAL CANCER
     Route: 042
     Dates: start: 20090303
  3. FLUOROURACIL [Suspect]
     Indication: RECTAL CANCER
     Dosage: IV BOLUS 700 MG 1 IN 2 WEEK IV DRIP 4000MG
     Route: 040
     Dates: start: 20090303
  4. LEUCOVORIN CALCIUM [Concomitant]
     Indication: RECTAL CANCER
     Dosage: 350MG, 1/2 WEEK: IV 4000MG: IV DRIP
     Route: 042
  5. POLARAMINE [Concomitant]
     Indication: PREMEDICATION
     Route: 042
     Dates: start: 20090303, end: 20090414
  6. DECADRON [Concomitant]
     Indication: PREMEDICATION
     Route: 042
     Dates: start: 20090303, end: 20090414
  7. GRANISETRON HCL [Concomitant]
     Indication: PREMEDICATION
     Route: 041
     Dates: start: 20090303
  8. URSO 250 [Concomitant]
     Indication: PROPHYLAXIS AGAINST DIARRHOEA
     Dosage: TABLET FORM
     Route: 048
     Dates: start: 20090303, end: 20090306
  9. SODIUM BICARBONATE [Concomitant]
     Indication: PROPHYLAXIS AGAINST DIARRHOEA
     Dosage: 1-8 G
     Route: 048
     Dates: start: 20090303, end: 20090306
  10. NOVAMIN [Concomitant]
     Indication: ANTIEMETIC SUPPORTIVE CARE
     Dosage: 3 DF/D. 1-8G TAB FORM
     Route: 048
     Dates: start: 20090303, end: 20090306
  11. KYTRIL [Concomitant]
     Indication: ANTIEMETIC SUPPORTIVE CARE
     Dosage: 1-8 G TAB
     Route: 048
     Dates: start: 20090303, end: 20090306
  12. GRAN [Concomitant]
     Route: 058
     Dates: start: 20090303, end: 20090406

REACTIONS (3)
  - DECREASED APPETITE [None]
  - DIARRHOEA [None]
  - NAUSEA [None]
